FAERS Safety Report 16957461 (Version 3)
Quarter: 2021Q1

REPORT INFORMATION
  Report Type: Spontaneous
  Country: US (occurrence: US)
  Receive Date: 20191024
  Receipt Date: 20210217
  Transmission Date: 20210419
  Serious: Yes (Hospitalization, Other)
  Sender: FDA-Public Use
  Company Number: US-PFIZER INC-2019449782

PATIENT
  Age: 61 Year
  Sex: Female
  Weight: 130 kg

DRUGS (3)
  1. DILANTIN [Suspect]
     Active Substance: PHENYTOIN
     Dosage: 120 MG, TWICE A DAY
     Dates: start: 2000
  2. DILANTIN [Suspect]
     Active Substance: PHENYTOIN
     Dosage: 100 MG CAPSULE, ALTERNATE 2 CAPSULES A DAY AND 3 CAPSULES A DAY
  3. DILANTIN [Suspect]
     Active Substance: PHENYTOIN
     Dosage: 100 MG, THREE TIMES A DAY
     Dates: start: 2000

REACTIONS (1)
  - Cerebrovascular accident [Not Recovered/Not Resolved]

NARRATIVE: CASE EVENT DATE: 19990525
